FAERS Safety Report 23379851 (Version 2)
Quarter: 2024Q1

REPORT INFORMATION
  Report Type: Report from Study
  Country: CA (occurrence: CA)
  Receive Date: 20240108
  Receipt Date: 20240213
  Transmission Date: 20240409
  Serious: Yes (Hospitalization)
  Sender: FDA-Public Use
  Company Number: CA-ABBVIE-5574219

PATIENT
  Age: 79 Year
  Sex: Female

DRUGS (1)
  1. SKYRIZI [Suspect]
     Active Substance: RISANKIZUMAB-RZAA
     Indication: Crohn^s disease
     Route: 058
     Dates: start: 20231201, end: 20231201

REACTIONS (12)
  - Gait inability [Unknown]
  - Asthenia [Unknown]
  - Arthralgia [Unknown]
  - Malaise [Unknown]
  - Fatigue [Unknown]
  - Herpes virus infection [Unknown]
  - Muscular weakness [Unknown]
  - Rhinitis [Unknown]
  - Back pain [Unknown]
  - Neck pain [Unknown]
  - Pain in extremity [Unknown]
  - Sinusitis [Unknown]

NARRATIVE: CASE EVENT DATE: 20231218
